FAERS Safety Report 8183953-8 (Version None)
Quarter: 2012Q1

REPORT INFORMATION
  Report Type: 
  Country: None (occurrence: None)
  Receive Date: 20120305
  Receipt Date: 20120302
  Transmission Date: 20120608
  Serious: No
  Sender: FDA-Public Use
  Company Number: US-PFIZER INC-2012056927

PATIENT
  Sex: Male

DRUGS (3)
  1. PRISTIQ [Suspect]
     Indication: ANXIETY
     Dosage: 100 MG, UNK
     Dates: start: 20120112, end: 20120226
  2. PRISTIQ [Suspect]
     Indication: PANIC ATTACK
     Dosage: 50 MG, UNK
     Dates: start: 20120107, end: 20120111
  3. PRISTIQ [Suspect]
     Indication: DEPRESSION
     Dosage: 150 MG, UNK
     Dates: start: 20120227

REACTIONS (1)
  - DRUG INEFFECTIVE [None]
